FAERS Safety Report 7986333-0 (Version None)
Quarter: 2011Q4

REPORT INFORMATION
  Report Type: 
  Country: None (occurrence: None)
  Receive Date: 20111216
  Receipt Date: 20110711
  Transmission Date: 20120403
  Serious: No
  Sender: FDA-Public Use
  Company Number: US-BRISTOL-MYERS SQUIBB COMPANY-15892904

PATIENT
  Age: 10 Year
  Sex: Male

DRUGS (1)
  1. ABILIFY [Suspect]
     Dosage: RECEIVED ABOUT AN YEAR STARTED AS 4ML THEN INCREASED TO 10 ML

REACTIONS (2)
  - AGGRESSION [None]
  - DRUG INEFFECTIVE [None]
